FAERS Safety Report 7999099-5 (Version None)
Quarter: 2011Q4

REPORT INFORMATION
  Report Type: 
  Country: None (occurrence: None)
  Receive Date: 20111221
  Receipt Date: 20111213
  Transmission Date: 20120403
  Serious: No
  Sender: FDA-Public Use
  Company Number: GB-ABBOTT-11P-167-0872813-00

PATIENT
  Age: 4 Year
  Sex: Male
  Weight: 25 kg

DRUGS (3)
  1. FENTANYL [Concomitant]
     Indication: ANALGESIC THERAPY
     Dosage: STAT (ONE OFF DOSE)
     Route: 042
     Dates: start: 20111021, end: 20111021
  2. SEVOFLURANE [Suspect]
     Indication: ANAESTHESIA
     Dosage: STAT (ONE OFF DOSE)
     Dates: start: 20111021, end: 20111021
  3. PROPOFOL [Concomitant]
     Indication: ANAESTHESIA
     Dosage: STAT (ONE OFF DOSE)
     Route: 042
     Dates: start: 20111021, end: 20111021

REACTIONS (1)
  - SLEEP TERROR [None]
